FAERS Safety Report 23389485 (Version 2)
Quarter: 2024Q2

REPORT INFORMATION
  Report Type: Report from Study
  Country: GB (occurrence: GB)
  Receive Date: 20240110
  Receipt Date: 20240420
  Transmission Date: 20240716
  Serious: Yes (Hospitalization)
  Sender: FDA-Public Use
  Company Number: GB-JNJFOC-20240103086

PATIENT
  Age: 6 Decade
  Sex: Male
  Weight: 142 kg

DRUGS (14)
  1. TREMFYA [Suspect]
     Active Substance: GUSELKUMAB
     Indication: Psoriasis
     Route: 065
     Dates: start: 20210312
  2. TREMFYA [Suspect]
     Active Substance: GUSELKUMAB
  3. TREMFYA [Suspect]
     Active Substance: GUSELKUMAB
  4. ATORVASTATIN [Concomitant]
     Active Substance: ATORVASTATIN
     Dates: start: 20090101
  5. CALCIUM\CHOLECALCIFEROL [Concomitant]
     Active Substance: CALCIUM\CHOLECALCIFEROL
     Dates: start: 20090101
  6. LORATADINE [Concomitant]
     Active Substance: LORATADINE
     Dates: start: 20090101
  7. ZOPICLONE [Concomitant]
     Active Substance: ZOPICLONE
     Dates: start: 20100101
  8. AMITRIPTYLINE [Concomitant]
     Active Substance: AMITRIPTYLINE
     Dates: start: 20130605
  9. ASPIRIN [Concomitant]
     Active Substance: ASPIRIN
     Dates: start: 20150819
  10. CLOPIDOGREL [Concomitant]
     Active Substance: CLOPIDOGREL BISULFATE
     Dates: start: 20150819
  11. DILTIAZEM [Concomitant]
     Active Substance: DILTIAZEM
     Dates: start: 20150819
  12. EUMOVATE [Concomitant]
     Active Substance: CLOBETASONE BUTYRATE
     Dates: start: 20190430
  13. BETAMETHASONE DIPROPIONATE\CALCIPOTRIENE HYDRATE [Concomitant]
     Active Substance: BETAMETHASONE DIPROPIONATE\CALCIPOTRIENE HYDRATE
     Dates: start: 20190430
  14. LISINOPRIL [Concomitant]
     Active Substance: LISINOPRIL
     Dates: start: 20200117

REACTIONS (2)
  - Lower respiratory tract infection [Unknown]
  - Atrial fibrillation [Unknown]

NARRATIVE: CASE EVENT DATE: 20230104
